FAERS Safety Report 25100346 (Version 1)
Quarter: 2025Q1

REPORT INFORMATION
  Report Type: Spontaneous
  Country: CL (occurrence: CL)
  Receive Date: 20250320
  Receipt Date: 20250320
  Transmission Date: 20250408
  Serious: Yes (Death, Hospitalization)
  Sender: PFIZER
  Company Number: CL-PFIZER INC-PV202400097302

PATIENT
  Age: 68 Year
  Sex: Female

DRUGS (1)
  1. IBRANCE [Suspect]
     Active Substance: PALBOCICLIB
     Indication: Breast cancer
     Dates: start: 2024, end: 20240722

REACTIONS (2)
  - Death [Fatal]
  - Cellulitis [Unknown]

NARRATIVE: CASE EVENT DATE: 20250226
